FAERS Safety Report 12473284 (Version 2)
Quarter: 2016Q3

REPORT INFORMATION
  Report Type: Spontaneous
  Country: US (occurrence: US)
  Receive Date: 20160616
  Receipt Date: 20160705
  Transmission Date: 20161109
  Serious: Yes (Other)
  Sender: FDA-Public Use
  Company Number: US-BAYER-2016-116599

PATIENT
  Age: 61 Year
  Sex: Female

DRUGS (1)
  1. CLIMARA [Suspect]
     Active Substance: ESTRADIOL
     Indication: HORMONE REPLACEMENT THERAPY
     Dosage: UNK
     Route: 062
     Dates: start: 1998, end: 1999

REACTIONS (18)
  - Feeling abnormal [None]
  - Adverse event [None]
  - Urticaria [None]
  - Hypersensitivity [None]
  - Gastrointestinal disorder [None]
  - Thyroid function test abnormal [None]
  - Anxiety [None]
  - Cholecystitis [None]
  - Blood glucose abnormal [None]
  - Panic attack [None]
  - Substance-induced psychotic disorder [None]
  - Weight decreased [None]
  - Agitation [None]
  - Anaphylactic shock [None]
  - Sphincter of Oddi dysfunction [None]
  - Insomnia [None]
  - Adrenal insufficiency [None]
  - Asthma [None]
